FAERS Safety Report 6238619-8 (Version None)
Quarter: 2009Q2

REPORT INFORMATION
  Report Type: 
  Country: None (occurrence: None)
  Receive Date: 20090618
  Receipt Date: 20090604
  Transmission Date: 20091009
  Serious: Yes (Hospitalization)
  Sender: FDA-Public Use
  Company Number: DEP_00264_2009

PATIENT
  Age: 77 Year
  Sex: Female

DRUGS (9)
  1. CIPROFLOXACIN [Suspect]
     Indication: URINARY TRACT INFECTION
     Dosage: (DF)
  2. SIMVASTATIN (SIMVASTATIN) [Suspect]
     Indication: DRUG USE FOR UNKNOWN INDICATION
     Dosage: (40 MG, FREQUENCY UNKNOWN)
  3. ISOSORBIDE MONONITRATE [Concomitant]
  4. PINDOLOL [Concomitant]
  5. CIMETIDINE [Concomitant]
  6. NICORANDIL [Concomitant]
  7. ASPIRIN [Concomitant]
  8. FUROSEMIDE INTENSOL [Concomitant]
  9. LEVOTHYROXINE SODIUM [Concomitant]

REACTIONS (11)
  - ALANINE AMINOTRANSFERASE INCREASED [None]
  - BLOOD PRESSURE SYSTOLIC INCREASED [None]
  - BLOOD URINE PRESENT [None]
  - DRUG INTERACTION [None]
  - DRUG TOXICITY [None]
  - DYSSTASIA [None]
  - HAEMOGLOBIN DECREASED [None]
  - MUSCULAR WEAKNESS [None]
  - MYALGIA [None]
  - POLYMYOSITIS [None]
  - RHABDOMYOLYSIS [None]
